FAERS Safety Report 6236790-5 (Version None)
Quarter: 2009Q2

REPORT INFORMATION
  Report Type: 
  Country: None (occurrence: None)
  Receive Date: 20090619
  Receipt Date: 20090612
  Transmission Date: 20091009
  Serious: Yes (Hospitalization)
  Sender: FDA-Public Use
  Company Number: PHHY2009AU23777

PATIENT
  Sex: Female

DRUGS (1)
  1. ACLASTA [Suspect]

REACTIONS (9)
  - ARTHRALGIA [None]
  - ASTHENIA [None]
  - FLUID INTAKE REDUCED [None]
  - HYPOPHAGIA [None]
  - LETHARGY [None]
  - MYALGIA [None]
  - NAUSEA [None]
  - OSTEOPOROSIS [None]
  - VOMITING [None]
